FAERS Safety Report 6269049-0 (Version None)
Quarter: 2009Q3

REPORT INFORMATION
  Report Type: 
  Country: None (occurrence: None)
  Receive Date: 20090715
  Receipt Date: 20090707
  Transmission Date: 20100115
  Serious: Yes (Hospitalization)
  Sender: FDA-Public Use
  Company Number: D0061272A

PATIENT
  Sex: Male

DRUGS (6)
  1. LAMICTAL [Suspect]
     Indication: EPILEPSY
     Dosage: 75MG TWICE PER DAY
     Route: 048
  2. TRAMADOL HCL [Suspect]
     Indication: ANALGESIA
     Dosage: 20DROP THREE TIMES PER DAY
     Route: 048
     Dates: start: 20050101, end: 20050101
  3. PHENOBARBITAL [Concomitant]
     Indication: EPILEPSY
     Route: 065
  4. LISKANTIN [Concomitant]
     Indication: EPILEPSY
     Dosage: 250MG PER DAY
     Route: 048
  5. ERGENYL CHRONO [Concomitant]
     Indication: EPILEPSY
     Dosage: 3600MG PER DAY
     Route: 048
  6. METAMIZOL [Concomitant]
     Indication: PAIN
     Route: 065
     Dates: start: 20050101

REACTIONS (12)
  - ANTICONVULSANT DRUG LEVEL ABOVE THERAPEUTIC [None]
  - ATAXIA [None]
  - DIPLOPIA [None]
  - DRUG INTERACTION [None]
  - DRUG TOXICITY [None]
  - MUSCULOSKELETAL DEFORMITY [None]
  - NAUSEA [None]
  - NYSTAGMUS [None]
  - OSTEOMALACIA [None]
  - PATHOLOGICAL FRACTURE [None]
  - SOMNOLENCE [None]
  - SPEECH DISORDER [None]
